FAERS Safety Report 7480798-9 (Version None)
Quarter: 2011Q2

REPORT INFORMATION
  Report Type: 
  Country: None (occurrence: None)
  Receive Date: 20110516
  Receipt Date: 20110502
  Transmission Date: 20111010
  Serious: Yes (Other)
  Sender: FDA-Public Use
  Company Number: US-ELI_LILLY_AND_COMPANY-US201103002839

PATIENT
  Sex: Female
  Weight: 53.968 kg

DRUGS (16)
  1. SINGULAIR [Concomitant]
     Dosage: UNK
     Route: 065
  2. ASPIRIN [Concomitant]
     Dosage: UNK
     Route: 065
  3. MAGNESIUM [Concomitant]
     Dosage: UNK
     Route: 065
  4. SYNTHROID [Concomitant]
     Dosage: UNK
     Route: 065
  5. INSULIN [Concomitant]
     Indication: DIABETES MELLITUS
  6. CALTRATE + D [Concomitant]
     Dosage: UNK
     Route: 065
  7. FISH OIL [Concomitant]
     Dosage: UNK
     Route: 065
  8. CENTRUM SILVER [Concomitant]
     Dosage: UNK
     Route: 065
  9. EVISTA [Suspect]
     Indication: OSTEOPOROSIS
     Dosage: 60 MG, OTHER
     Route: 048
     Dates: start: 20090901, end: 20110304
  10. ESTER-C [Concomitant]
     Dosage: UNK
     Route: 065
  11. VITAMIN E                            /001105/ [Concomitant]
     Dosage: UNK
     Route: 065
  12. GARLIC [Concomitant]
     Dosage: UNK
     Route: 065
  13. SELENIUM [Concomitant]
     Dosage: UNK
     Route: 065
  14. NEXIUM [Concomitant]
     Indication: GASTROOESOPHAGEAL REFLUX DISEASE
  15. ALBUTEROL [Concomitant]
     Dosage: UNK
     Route: 065
  16. PREMARIN [Concomitant]
     Dosage: UNK
     Route: 065

REACTIONS (2)
  - PAIN IN EXTREMITY [None]
  - HIP ARTHROPLASTY [None]
